FAERS Safety Report 26170746 (Version 1)
Quarter: 2025Q4

REPORT INFORMATION
  Report Type: Spontaneous
  Country: US (occurrence: US)
  Receive Date: 20251217
  Receipt Date: 20251217
  Transmission Date: 20260117
  Serious: No
  Sender: ALVOGEN
  Company Number: US-ALVOGEN-2025097979

PATIENT
  Age: 43 Year

DRUGS (2)
  1. FENTANYL [Suspect]
     Active Substance: FENTANYL
     Indication: Product used for unknown indication
     Dosage: 50MCG/HR ONE PATCH ON EVERY 3RD DAY
     Dates: start: 2024
  2. FENTANYL [Suspect]
     Active Substance: FENTANYL
     Indication: Product used for unknown indication
     Dosage: EXPIRATION DATE: SEP-2027?50MCG/HR ONE PATCH ON EVERY 3RD DAY

REACTIONS (4)
  - Pruritus [Unknown]
  - Device malfunction [Unknown]
  - Device adhesion issue [Unknown]
  - Product quality issue [Unknown]
